FAERS Safety Report 4372253-X (Version None)
Quarter: 2004Q2

REPORT INFORMATION
  Report Type: 
  Country: None (occurrence: None)
  Receive Date: 20040602
  Receipt Date: 20040519
  Transmission Date: 20050107
  Serious: Yes (Hospitalization)
  Sender: FDA-Public Use
  Company Number: DK-JNJFOC-20040500296

PATIENT
  Age: 48 Year
  Sex: Female
  Weight: 63 kg

DRUGS (8)
  1. REMICADE [Suspect]
     Indication: CROHN'S DISEASE
     Dosage: 300 MG, 1 IN 8 WEEK, INTRAVENOUS
     Route: 042
     Dates: start: 20030320
  2. AZATHIOPRINE [Suspect]
     Indication: CROHN'S DISEASE
     Dosage: 150 MG, ORAL
     Route: 048
     Dates: start: 20020420
  3. ENTOCORT (BUDESONIDE) [Concomitant]
  4. CENTYL (BENDROFLUMETHAZIDE) [Concomitant]
  5. POTASSIUM CHLORIDE [Concomitant]
  6. IMODIUM [Concomitant]
  7. VIBEDEN (HYDROXOCOBALAMIN) [Concomitant]
  8. UNICAL (CALCIUM LACTATE) [Concomitant]

REACTIONS (6)
  - AMPUTATION [None]
  - CERVIX CARCINOMA [None]
  - DRUG INTERACTION [None]
  - DYSMENORRHOEA [None]
  - POST PROCEDURAL COMPLICATION [None]
  - POST PROCEDURAL PAIN [None]
